FAERS Safety Report 20905947 (Version 1)
Quarter: 2022Q2

REPORT INFORMATION
  Report Type: Report from Study
  Country: RU (occurrence: RU)
  Receive Date: 20220602
  Receipt Date: 20220602
  Transmission Date: 20220721
  Serious: Yes (Hospitalization)
  Sender: FDA-Public Use
  Company Number: RU-TEVA-2022-RU-2041059

PATIENT
  Age: 4 Year
  Sex: Female

DRUGS (5)
  1. METHOTREXATE [Suspect]
     Active Substance: METHOTREXATE
     Indication: Prophylaxis against graft versus host disease
     Dosage: ON DAYS+1, +3 AND +6
     Route: 065
  2. TACROLIMUS [Suspect]
     Active Substance: TACROLIMUS
     Indication: Prophylaxis against graft versus host disease
     Route: 065
  3. BUSULFAN [Suspect]
     Active Substance: BUSULFAN
     Indication: Bone marrow conditioning regimen
     Dosage: 0.8 MG/DOSE SIXTEEN TIMES
     Route: 065
  4. CYCLOPHOSPHAMIDE [Suspect]
     Active Substance: CYCLOPHOSPHAMIDE
     Indication: Bone marrow conditioning regimen
     Route: 065
  5. ALEMTUZUMAB [Suspect]
     Active Substance: ALEMTUZUMAB
     Indication: Bone marrow conditioning regimen
     Dosage: 5 MG/DOSE FOUR TIMES
     Route: 065

REACTIONS (6)
  - Drug ineffective [Unknown]
  - Adenovirus infection [Recovered/Resolved]
  - Human herpesvirus 7 infection [Recovered/Resolved]
  - BK virus infection [Unknown]
  - Cystitis viral [Unknown]
  - Molluscum contagiosum [Recovered/Resolved]
